APPROVED DRUG PRODUCT: HALOBETASOL PROPIONATE
Active Ingredient: HALOBETASOL PROPIONATE
Strength: 0.05%
Dosage Form/Route: OINTMENT;TOPICAL
Application: A209978 | Product #001
Applicant: ENCUBE ETHICALS PRIVATE LTD
Approved: Mar 20, 2018 | RLD: No | RS: No | Type: DISCN